FAERS Safety Report 13063362 (Version 1)
Quarter: 2016Q4

REPORT INFORMATION
  Report Type: Spontaneous
  Country: US (occurrence: US)
  Receive Date: 20161227
  Receipt Date: 20161227
  Transmission Date: 20170207
  Serious: Yes (Life-Threatening, Other)
  Sender: FDA-Public Use
  Company Number: US-ZYDUS-012984

PATIENT
  Age: 77 Year
  Sex: Male

DRUGS (1)
  1. METFORMIN [Suspect]
     Active Substance: METFORMIN HYDROCHLORIDE
     Indication: DIABETES MELLITUS
     Route: 065

REACTIONS (12)
  - Lactic acidosis [Recovering/Resolving]
  - Clostridium difficile infection [Recovering/Resolving]
  - Metabolic acidosis [Recovering/Resolving]
  - Urinary tract infection [Recovering/Resolving]
  - Vomiting [Recovering/Resolving]
  - Confusional state [Recovering/Resolving]
  - Drug level above therapeutic [Recovering/Resolving]
  - Diarrhoea [Recovering/Resolving]
  - Renal failure [Recovering/Resolving]
  - Blood creatinine increased [Recovering/Resolving]
  - Acute kidney injury [Recovering/Resolving]
  - Sepsis [Recovering/Resolving]
